FAERS Safety Report 10143166 (Version 1)
Quarter: 2014Q2

REPORT INFORMATION
  Report Type: Spontaneous
  Country: US (occurrence: None)
  Receive Date: 20140429
  Receipt Date: 20140429
  Transmission Date: 20141212
  Serious: Yes (Hospitalization, Disabling, Other)
  Sender: FDA-Public Use
  Company Number: None

PATIENT
  Age: 51 Year
  Sex: Male
  Weight: 79.38 kg

DRUGS (1)
  1. XANAX [Suspect]
     Indication: STRESS
     Dosage: 10 MG 3 TIMES DAILY TAKEN BY MOUTH.
     Dates: start: 20091126, end: 20130407

REACTIONS (4)
  - Convulsion [None]
  - Fall [None]
  - Skull fracture [None]
  - Insomnia [None]
